FAERS Safety Report 9447601 (Version 1)
Quarter: 2013Q3

REPORT INFORMATION
  Report Type: Spontaneous
  Country: US (occurrence: None)
  Receive Date: 20130805
  Receipt Date: 20130805
  Transmission Date: 20140515
  Serious: Yes (Other)
  Sender: FDA-Public Use
  Company Number: VAL_02671_2013

PATIENT
  Age: 28 Year
  Sex: Female

DRUGS (2)
  1. METOPROLOL [Suspect]
     Indication: PRODUCT USED FOR UNKNOWN INDICATION
  2. OXYTOCIN [Suspect]
     Indication: LABOUR INDUCTION
     Dosage: DF,  INTRAVENOUS (NOT OTHERWISE SPECIFIED)
     Route: 042

REACTIONS (3)
  - Exposure during pregnancy [None]
  - Forceps delivery [None]
  - Uterine atony [None]
